FAERS Safety Report 21887340 (Version 1)
Quarter: 2023Q1

REPORT INFORMATION
  Report Type: Spontaneous
  Country: US (occurrence: US)
  Receive Date: 20230119
  Receipt Date: 20230119
  Transmission Date: 20230418
  Serious: No
  Sender: FDA-Public Use
  Company Number: US-ELI_LILLY_AND_COMPANY-US202212012317

PATIENT
  Age: 71 Year
  Sex: Female

DRUGS (2)
  1. RETEVMO [Suspect]
     Active Substance: SELPERCATINIB
     Indication: Thyroid cancer
     Dosage: 160 MG, BID
     Route: 048
  2. RETEVMO [Suspect]
     Active Substance: SELPERCATINIB
     Dosage: 240 MG, BID
     Route: 048
     Dates: start: 202212

REACTIONS (2)
  - Dizziness [Not Recovered/Not Resolved]
  - Headache [Not Recovered/Not Resolved]

NARRATIVE: CASE EVENT DATE: 20221201
